FAERS Safety Report 22980481 (Version 2)
Quarter: 2023Q4

REPORT INFORMATION
  Report Type: Spontaneous
  Country: US (occurrence: US)
  Receive Date: 20230925
  Receipt Date: 20231215
  Transmission Date: 20240109
  Serious: Yes (Other)
  Sender: FDA-Public Use
  Company Number: US-PFIZER INC-PV202300157576

PATIENT
  Age: 70 Year
  Sex: Female
  Weight: 90.703 kg

DRUGS (1)
  1. IBRANCE [Suspect]
     Active Substance: PALBOCICLIB
     Indication: Breast cancer metastatic
     Dosage: 100 MG, DAILY 3 WEEKS 1 WEEK OFF
     Route: 048
     Dates: start: 2019

REACTIONS (5)
  - Shoulder operation [Unknown]
  - Neoplasm recurrence [Unknown]
  - Nervousness [Unknown]
  - Product dose omission issue [Unknown]
  - Wrong technique in product usage process [Unknown]
